FAERS Safety Report 16082879 (Version 1)
Quarter: 2019Q1

REPORT INFORMATION
  Report Type: Spontaneous
  Country: US (occurrence: US)
  Receive Date: 20190318
  Receipt Date: 20190318
  Transmission Date: 20190418
  Serious: Yes (Other)
  Sender: FDA-Public Use
  Company Number: US-BAUSCH-BL-2019-004372

PATIENT
  Age: 88 Year
  Sex: Male
  Weight: 58.57 kg

DRUGS (5)
  1. SOOTHE LONG LASTING (PRESERVATIVE FREE) [Suspect]
     Active Substance: GLYCERIN\PROPYLENE GLYCOL
     Indication: DRY EYE
     Dosage: TWO DROPS IN EACH EYE THREE TIMES DAILY
     Route: 047
     Dates: start: 20190204, end: 20190208
  2. COMBIGAN [Concomitant]
     Active Substance: BRIMONIDINE TARTRATE\TIMOLOL MALEATE
     Indication: PRODUCT USED FOR UNKNOWN INDICATION
     Route: 047
  3. LOPRESSOR [Concomitant]
     Active Substance: METOPROLOL TARTRATE
     Indication: PRODUCT USED FOR UNKNOWN INDICATION
     Route: 048
  4. TRAVATAN [Concomitant]
     Active Substance: TRAVOPROST
     Indication: PRODUCT USED FOR UNKNOWN INDICATION
     Route: 047
  5. AZOPT [Concomitant]
     Active Substance: BRINZOLAMIDE
     Indication: PRODUCT USED FOR UNKNOWN INDICATION
     Route: 047

REACTIONS (1)
  - Intraocular pressure increased [Unknown]

NARRATIVE: CASE EVENT DATE: 20190208
